FAERS Safety Report 16722056 (Version 1)
Quarter: 2019Q3

REPORT INFORMATION
  Report Type: Spontaneous
  Country: CN (occurrence: CN)
  Receive Date: 20190820
  Receipt Date: 20190820
  Transmission Date: 20191005
  Serious: Yes (Other)
  Sender: FDA-Public Use
  Company Number: CN-ELI_LILLY_AND_COMPANY-CN201908003125

PATIENT
  Sex: Male

DRUGS (7)
  1. TARGOCID [Suspect]
     Active Substance: TEICOPLANIN
     Indication: LUNG INFECTION
     Dosage: 400 MG, DAILY
     Route: 050
     Dates: start: 20190710, end: 20190722
  2. SODIUM CHLORIDE. [Suspect]
     Active Substance: SODIUM CHLORIDE
     Indication: LUNG INFECTION
     Dosage: 40 ML, SINGLE
     Route: 050
     Dates: start: 20190710, end: 20190722
  3. MEROPENEM. [Suspect]
     Active Substance: MEROPENEM
     Indication: LUNG INFECTION
     Dosage: 1 G, TID
     Route: 050
     Dates: start: 20190710, end: 20190722
  4. ELOXATIN [Suspect]
     Active Substance: OXALIPLATIN
     Indication: T-CELL LYMPHOMA
     Dosage: 210 MG, SINGLE
     Route: 041
     Dates: start: 20190718, end: 20190718
  5. SODIUM CHLORIDE. [Suspect]
     Active Substance: SODIUM CHLORIDE
     Indication: T-CELL LYMPHOMA
     Dosage: 100 ML, SINGLE
     Route: 041
     Dates: start: 20190718, end: 20190718
  6. GEMZAR [Suspect]
     Active Substance: GEMCITABINE HYDROCHLORIDE
     Indication: T-CELL LYMPHOMA
     Dosage: 1620 MG, SINGLE
     Route: 041
     Dates: start: 20190718, end: 20190718
  7. SODIUM CHLORIDE. [Suspect]
     Active Substance: SODIUM CHLORIDE
     Dosage: 500 ML, SINGLE
     Route: 041
     Dates: start: 20190718, end: 20190718

REACTIONS (7)
  - Infection [Unknown]
  - Leukopenia [Recovering/Resolving]
  - Acute kidney injury [Recovering/Resolving]
  - Off label use [Unknown]
  - Neutropenia [Recovering/Resolving]
  - Hyperthermia [Recovering/Resolving]
  - Chills [Recovering/Resolving]

NARRATIVE: CASE EVENT DATE: 20190718
